FAERS Safety Report 22323185 (Version 1)
Quarter: 2023Q2

REPORT INFORMATION
  Report Type: Report from Study
  Country: CA (occurrence: CA)
  Receive Date: 20230516
  Receipt Date: 20230516
  Transmission Date: 20230722
  Serious: Yes (Other)
  Sender: FDA-Public Use
  Company Number: CA-SAMSUNG BIOEPIS-SB-2023-13022

PATIENT
  Age: 13 Year
  Sex: Female
  Weight: 25 kg

DRUGS (1)
  1. RENFLEXIS [Suspect]
     Active Substance: INFLIXIMAB-ABDA
     Indication: Colitis ulcerative
     Route: 042

REACTIONS (3)
  - Colitis ulcerative [Recovering/Resolving]
  - Therapeutic response shortened [Recovering/Resolving]
  - Product use issue [Unknown]
